FAERS Safety Report 24014072 (Version 1)
Quarter: 2024Q2

REPORT INFORMATION
  Report Type: Spontaneous
  Country: AU (occurrence: AU)
  Receive Date: 20240626
  Receipt Date: 20240626
  Transmission Date: 20240716
  Serious: Yes (Other)
  Sender: FDA-Public Use
  Company Number: AU-GILEAD-2024-0678027

PATIENT
  Age: 53 Year
  Sex: Male

DRUGS (5)
  1. VEMLIDY [Suspect]
     Active Substance: TENOFOVIR ALAFENAMIDE FUMARATE
     Indication: Chronic hepatitis B
     Dosage: UNK
     Route: 065
     Dates: end: 201802
  2. VEMLIDY [Suspect]
     Active Substance: TENOFOVIR ALAFENAMIDE FUMARATE
     Dosage: UNK (DRUG START DATE: -NOV-2019)
     Route: 065
  3. CALTRATE [Concomitant]
     Active Substance: CALCIUM CARBONATE
  4. VIT D [VITAMIN D NOS] [Concomitant]
  5. SODIUM PHOSPHATE, DIBASIC, ANHYDROUS [Concomitant]
     Active Substance: SODIUM PHOSPHATE, DIBASIC, ANHYDROUS
     Dosage: TWICE A WEEK

REACTIONS (4)
  - Hepatitis B [Not Recovered/Not Resolved]
  - Osteopenia [Recovered/Resolved]
  - Hepatic lesion [Unknown]
  - Drug ineffective [Unknown]

NARRATIVE: CASE EVENT DATE: 20180101
